FAERS Safety Report 12447266 (Version 3)
Quarter: 2016Q3

REPORT INFORMATION
  Report Type: Spontaneous
  Country: DE (occurrence: DE)
  Receive Date: 20160608
  Receipt Date: 20160906
  Transmission Date: 20161109
  Serious: Yes (Life-Threatening, Hospitalization)
  Sender: FDA-Public Use
  Company Number: DE-ELI_LILLY_AND_COMPANY-DE201606000571

PATIENT
  Sex: Female

DRUGS (15)
  1. ALLOPURINOL. [Concomitant]
     Active Substance: ALLOPURINOL
     Dosage: UNK, EACH MORNING
     Route: 065
  2. ASPIRIN. [Concomitant]
     Active Substance: ASPIRIN
     Dosage: UNK, EACH MORNING
     Route: 065
  3. LIPROLOG [Concomitant]
     Active Substance: INSULIN LISPRO
     Dosage: UNK UNK, OTHER
     Route: 065
  4. GABAPENTIN. [Concomitant]
     Active Substance: GABAPENTIN
     Dosage: UNK, EACH EVENING
     Route: 065
  5. PANTOZOL [Concomitant]
     Active Substance: PANTOPRAZOLE SODIUM
     Dosage: 40 MG, EACH MORNING
     Route: 065
  6. TRULICITY [Suspect]
     Active Substance: DULAGLUTIDE
     Indication: TYPE 2 DIABETES MELLITUS
     Dosage: UNK UNK, WEEKLY (1/W)
     Route: 058
     Dates: start: 20160503, end: 20160601
  7. METOPROLOL. [Concomitant]
     Active Substance: METOPROLOL
     Dosage: 200 MG, EACH MORNING
     Route: 065
  8. METOPROLOL. [Concomitant]
     Active Substance: METOPROLOL
     Dosage: 200 MG, EACH EVENING
     Route: 065
  9. L-THYROXINE                        /00068001/ [Concomitant]
     Active Substance: LEVOTHYROXINE
     Dosage: UNK UNK, EACH MORNING
     Route: 065
  10. PREGABADOR [Concomitant]
     Dosage: UNK, EACH MORNING
     Route: 065
  11. TOUJEO [Concomitant]
     Active Substance: INSULIN GLARGINE
     Dosage: 35 IU, EACH EVENING
     Route: 065
  12. TRULICITY [Suspect]
     Active Substance: DULAGLUTIDE
     Indication: INSULIN RESISTANCE
  13. TORASEMIDE HEXAL [Concomitant]
     Dosage: UNK, EACH EVENING
     Route: 065
  14. L-THYROXINE                        /00068001/ [Concomitant]
     Active Substance: LEVOTHYROXINE
     Dosage: UNK, EACH EVENING
     Route: 065
  15. TORASEMIDE HEXAL [Concomitant]
     Dosage: UNK UNK, EACH MORNING
     Route: 065

REACTIONS (7)
  - Hyperlipasaemia [Unknown]
  - Prothrombin time shortened [Unknown]
  - Hepatic failure [Not Recovered/Not Resolved]
  - Renal failure [Not Recovered/Not Resolved]
  - Low density lipoprotein increased [Unknown]
  - Blood triglycerides increased [Unknown]
  - Cholangiocarcinoma [Unknown]

NARRATIVE: CASE EVENT DATE: 20160601
